FAERS Safety Report 7880699-8 (Version None)
Quarter: 2011Q4

REPORT INFORMATION
  Report Type: 
  Country: None (occurrence: None)
  Receive Date: 20111101
  Receipt Date: 20111028
  Transmission Date: 20120403
  Serious: Yes (Other)
  Sender: FDA-Public Use
  Company Number: JM-ELI_LILLY_AND_COMPANY-JM201110007287

PATIENT
  Age: 77 Year
  Sex: Male

DRUGS (6)
  1. FAMOTIDINE [Concomitant]
  2. ALDOMET [Concomitant]
     Dosage: 500 DF, UNKNOWN
  3. DIOVAN [Concomitant]
  4. INDAPAMIDE [Concomitant]
  5. LANSOPRAZOLE [Concomitant]
  6. TADALAFIL [Suspect]
     Indication: ERECTILE DYSFUNCTION
     Dosage: 20 MG, UNKNOWN

REACTIONS (1)
  - LOSS OF CONSCIOUSNESS [None]
